FAERS Safety Report 20644425 (Version 2)
Quarter: 2025Q2

REPORT INFORMATION
  Report Type: Spontaneous
  Country: US (occurrence: US)
  Receive Date: 20220328
  Receipt Date: 20250415
  Transmission Date: 20250716
  Serious: No
  Sender: SANOFI AVENTIS
  Company Number: US-SA-SAC20220322000271

PATIENT
  Age: 14 Year
  Sex: Female
  Weight: 68.18 kg

DRUGS (4)
  1. DUPIXENT [Suspect]
     Active Substance: DUPILUMAB
     Indication: Dermatitis atopic
     Dosage: 300 MG, QOW
     Route: 058
  2. ETHINYL ESTRADIOL\ETHYNODIOL DIACETATE [Concomitant]
     Active Substance: ETHINYL ESTRADIOL\ETHYNODIOL DIACETATE
  3. Iron;Vitamin C [Concomitant]
  4. COSMETICS [Concomitant]
     Active Substance: COSMETICS

REACTIONS (5)
  - Sleep disorder due to a general medical condition [Not Recovered/Not Resolved]
  - Rebound atopic dermatitis [Unknown]
  - Dermatitis atopic [Not Recovered/Not Resolved]
  - Dry skin [Recovering/Resolving]
  - Pruritus [Not Recovered/Not Resolved]
